FAERS Safety Report 5317383-0 (Version None)
Quarter: 2007Q2

REPORT INFORMATION
  Report Type: 
  Country: None (occurrence: None)
  Receive Date: 20070504
  Receipt Date: 20070425
  Transmission Date: 20071010
  Serious: Yes (Hospitalization)
  Sender: FDA-Public Use
  Company Number: FR-ABBOTT-07P-056-0366064-00

PATIENT
  Sex: Male
  Weight: 82 kg

DRUGS (6)
  1. NORVIR [Suspect]
     Indication: HIV INFECTION
     Route: 048
     Dates: start: 20040826
  2. LAMIVUDINE + ZIDOVUDINE [Suspect]
     Indication: HIV INFECTION
     Route: 048
     Dates: start: 20040826, end: 20070323
  3. ATAZANAVIR SULFATE [Suspect]
     Indication: HIV INFECTION
     Route: 048
     Dates: start: 20040826
  4. RIBAVIRIN [Concomitant]
     Indication: HEPATITIS C
     Dates: start: 20070228, end: 20070312
  5. PEGINTERFERON ALPHA-2A [Concomitant]
     Indication: HEPATITIS C
     Route: 058
     Dates: start: 20070228, end: 20070312
  6. PEGINTERFERON ALPHA-2A [Concomitant]
     Route: 058
     Dates: start: 20070309, end: 20070312

REACTIONS (4)
  - ASCITES [None]
  - HEPATIC CIRRHOSIS [None]
  - NEUTROPENIA [None]
  - SEPSIS [None]
